FAERS Safety Report 5187751-9 (Version None)
Quarter: 2006Q4

REPORT INFORMATION
  Report Type: 
  Country: None (occurrence: None)
  Receive Date: 20061221
  Receipt Date: 20061214
  Transmission Date: 20070319
  Serious: Yes (Hospitalization)
  Sender: FDA-Public Use
  Company Number: US-JNJFOC-20061204854

PATIENT
  Sex: Female
  Weight: 72.58 kg

DRUGS (1)
  1. DURAGESIC-100 [Suspect]
     Indication: DRUG USE FOR UNKNOWN INDICATION
     Route: 062

REACTIONS (5)
  - EXPIRED DRUG ADMINISTERED [None]
  - GENITAL PRURITUS FEMALE [None]
  - MUSCULOSKELETAL PAIN [None]
  - NONSPECIFIC REACTION [None]
  - PRURITUS [None]
